FAERS Safety Report 20884801 (Version 1)
Quarter: 2022Q2

REPORT INFORMATION
  Report Type: Spontaneous
  Country: CA (occurrence: CA)
  Receive Date: 20220527
  Receipt Date: 20220527
  Transmission Date: 20220720
  Serious: Yes (Death, Other)
  Sender: FDA-Public Use
  Company Number: CA-BRISTOL-MYERS SQUIBB COMPANY-2022-047269

PATIENT
  Age: 77 Year
  Sex: Female

DRUGS (7)
  1. APIXABAN [Suspect]
     Active Substance: APIXABAN
     Route: 065
  2. RITUXIMAB [Suspect]
     Active Substance: RITUXIMAB
     Indication: Central nervous system lymphoma
     Dosage: 1000 MG
     Route: 042
     Dates: start: 20210513
  3. METHOTREXATE SODIUM [Suspect]
     Active Substance: METHOTREXATE SODIUM
     Indication: Central nervous system lymphoma
     Route: 042
  4. CYTARABINE [Suspect]
     Active Substance: CYTARABINE
     Indication: Central nervous system lymphoma
     Route: 042
  5. DECADRON [Concomitant]
     Active Substance: DEXAMETHASONE
     Dosage: 4 MG, 2X/DAY
     Route: 048
  6. VALTREX [Concomitant]
     Active Substance: VALACYCLOVIR HYDROCHLORIDE
     Route: 065
  7. LEVOTHYROXINE SODIUM [Concomitant]
     Active Substance: LEVOTHYROXINE SODIUM
     Route: 065

REACTIONS (5)
  - Lymphoma [Fatal]
  - Neoplasm progression [Fatal]
  - Drug ineffective [Unknown]
  - Product supply issue [Unknown]
  - Off label use [Unknown]
